FAERS Safety Report 25684267 (Version 1)
Quarter: 2025Q3

REPORT INFORMATION
  Report Type: Spontaneous
  Country: EU (occurrence: EU)
  Receive Date: 20250815
  Receipt Date: 20250815
  Transmission Date: 20251021
  Serious: Yes (Other)
  Sender: CELLTRION
  Company Number: EU-ESTEVE-2025-01444

PATIENT

DRUGS (5)
  1. RITUXIMAB [Suspect]
     Active Substance: RITUXIMAB
     Indication: Product used for unknown indication
  2. THIOTEPA [Suspect]
     Active Substance: THIOTEPA
     Indication: Product used for unknown indication
  3. METHOTREXATE [Suspect]
     Active Substance: METHOTREXATE
     Indication: Product used for unknown indication
  4. CYTARABINE [Suspect]
     Active Substance: CYTARABINE
     Indication: Product used for unknown indication
  5. IBRUTINIB [Suspect]
     Active Substance: IBRUTINIB
     Indication: Product used for unknown indication

REACTIONS (7)
  - Enterocolitis [Recovering/Resolving]
  - Condition aggravated [Recovering/Resolving]
  - Anal incontinence [Recovered/Resolved]
  - Decubitus ulcer [Recovering/Resolving]
  - Dermatitis [Recovering/Resolving]
  - Urinary incontinence [Recovered/Resolved]
  - Drug ineffective [Unknown]
